FAERS Safety Report 20512532 (Version 1)
Quarter: 2022Q1

REPORT INFORMATION
  Report Type: Spontaneous
  Country: US (occurrence: None)
  Receive Date: 20220224
  Receipt Date: 20220224
  Transmission Date: 20220424
  Serious: No
  Sender: FDA-Public Use
  Company Number: 2022A077782

PATIENT
  Age: 75 Year
  Sex: Female

DRUGS (1)
  1. TUDORZA PRESSAIR [Suspect]
     Active Substance: ACLIDINIUM BROMIDE
     Indication: Chronic obstructive pulmonary disease
     Dosage: 400
     Route: 055

REACTIONS (8)
  - Visual impairment [Not Recovered/Not Resolved]
  - Cognitive disorder [Not Recovered/Not Resolved]
  - Device use issue [Unknown]
  - Device operational issue [Not Recovered/Not Resolved]
  - Product dose omission issue [Recovered/Resolved]
  - Product dispensing error [Recovered/Resolved]
  - Device mechanical issue [Unknown]
  - Wrong technique in device usage process [Unknown]

NARRATIVE: CASE EVENT DATE: 20220201
